FAERS Safety Report 6115133-1 (Version None)
Quarter: 2009Q1

REPORT INFORMATION
  Report Type: 
  Country: None (occurrence: None)
  Receive Date: 20090313
  Receipt Date: 20090302
  Transmission Date: 20090719
  Serious: Yes (Death, Other)
  Sender: FDA-Public Use
  Company Number: JP-PFIZER INC-2009150375

PATIENT

DRUGS (10)
  1. VFEND [Suspect]
     Indication: BRONCHOPULMONARY ASPERGILLOSIS
     Dosage: 200 MG, 2X/DAY
     Route: 042
     Dates: start: 20081128, end: 20081202
  2. VFEND [Suspect]
     Dosage: 200 MG, 1X/DAY
     Route: 042
     Dates: start: 20081222
  3. PELTAZON [Suspect]
     Indication: TUMOUR PAIN
     Dosage: 12.5-50 MG, AS NEEDED
     Route: 048
     Dates: start: 20081007, end: 20081129
  4. SANDIMMUNE [Suspect]
     Indication: GRAFT VERSUS HOST DISEASE
     Dosage: 180-240MG 2X/DAY
     Route: 042
     Dates: start: 20081111, end: 20090123
  5. VANCOMYCIN [Concomitant]
     Dosage: UNK
     Route: 042
     Dates: start: 20081101, end: 20081201
  6. FIRSTCIN [Concomitant]
     Dosage: UNK
     Route: 042
     Dates: start: 20081128, end: 20081210
  7. ISEPACIN [Concomitant]
     Dosage: UNK
     Route: 042
     Dates: start: 20081112, end: 20081201
  8. DIGOSIN [Concomitant]
     Dosage: UNK
     Route: 042
     Dates: start: 20081121, end: 20081220
  9. GRAN [Concomitant]
     Dosage: UNK
     Route: 042
     Dates: start: 20081113, end: 20081130
  10. CALONAL [Concomitant]
     Dosage: UNK
     Route: 048
     Dates: start: 20081007, end: 20090113

REACTIONS (4)
  - B-CELL LYMPHOMA [None]
  - CONFUSIONAL STATE [None]
  - NEOPLASM MALIGNANT [None]
  - SOLILOQUY [None]
